FAERS Safety Report 16145163 (Version 2)
Quarter: 2019Q3

REPORT INFORMATION
  Report Type: Spontaneous
  Country: ES (occurrence: ES)
  Receive Date: 20190402
  Receipt Date: 20190703
  Transmission Date: 20191004
  Serious: Yes (Other)
  Sender: FDA-Public Use
  Company Number: ES-AUROBINDO-AUR-APL-2019-017419

PATIENT

DRUGS (1)
  1. FINASTERIDE FILM-COATED TABLETS [Suspect]
     Active Substance: FINASTERIDE
     Indication: CAPILLARY DISORDER
     Dosage: 1 MILLIGRAM, ONCE A DAY
     Route: 048
     Dates: start: 2018

REACTIONS (1)
  - Suicidal ideation [Recovered/Resolved]

NARRATIVE: CASE EVENT DATE: 201810
